FAERS Safety Report 18379825 (Version 4)
Quarter: 2020Q4

REPORT INFORMATION
  Report Type: Report from Study
  Country: US (occurrence: US)
  Receive Date: 20201014
  Receipt Date: 20201217
  Transmission Date: 20210114
  Serious: Yes (Hospitalization, Other)
  Sender: FDA-Public Use
  Company Number: US-GILEAD-2020-0498296

PATIENT
  Age: 52 Year
  Sex: Female

DRUGS (24)
  1. AZTREONAM LYSINE [Suspect]
     Active Substance: AZTREONAM LYSINE
     Indication: CYSTIC FIBROSIS LUNG
  2. TOBRAMYCIN SULFATE. [Concomitant]
     Active Substance: TOBRAMYCIN SULFATE
  3. VENTOLIN HFA [Concomitant]
     Active Substance: ALBUTEROL SULFATE
  4. ACETYLCYSTEINE. [Concomitant]
     Active Substance: ACETYLCYSTEINE
  5. TOBI [Concomitant]
     Active Substance: TOBRAMYCIN
  6. BUDESONIDE. [Concomitant]
     Active Substance: BUDESONIDE
  7. COMBIVENT RESPIMAT [Concomitant]
     Active Substance: ALBUTEROL SULFATE\IPRATROPIUM BROMIDE
  8. CYCLOBENZAPRINE HCL [Concomitant]
     Active Substance: CYCLOBENZAPRINE HYDROCHLORIDE
  9. MAGNESIUM [Concomitant]
     Active Substance: MAGNESIUM
  10. MULTIVIT [VITAMINS NOS] [Concomitant]
  11. TRIKAFTA [Concomitant]
     Active Substance: ELEXACAFTOR\IVACAFTOR\TEZACAFTOR
  12. LORAZEPAM. [Concomitant]
     Active Substance: LORAZEPAM
  13. AZITHROMYCIN ANHYDROUS. [Concomitant]
     Active Substance: AZITHROMYCIN ANHYDROUS
  14. OXYGEN. [Concomitant]
     Active Substance: OXYGEN
  15. AZTREONAM LYSINE [Suspect]
     Active Substance: AZTREONAM LYSINE
     Indication: CYSTIC FIBROSIS
     Dosage: 75 MG, TID 28 DAYS ON AND 28 DAYS OFF
     Route: 055
  16. HYPERSAL [Concomitant]
     Active Substance: SODIUM CHLORIDE
  17. ALPRAZOLAM. [Concomitant]
     Active Substance: ALPRAZOLAM
  18. IPRATROPIUM/ALBUTEROL [Concomitant]
     Active Substance: ALBUTEROL\IPRATROPIUM
  19. URSODIOL. [Concomitant]
     Active Substance: URSODIOL
  20. PULMOZYME [Concomitant]
     Active Substance: DORNASE ALFA
  21. PREDNISONE. [Concomitant]
     Active Substance: PREDNISONE
  22. MEROPENEM. [Concomitant]
     Active Substance: MEROPENEM
  23. CALCIUM [Concomitant]
     Active Substance: CALCIUM
  24. VITAMIN D3 [Concomitant]
     Active Substance: CHOLECALCIFEROL

REACTIONS (6)
  - Dyspnoea [Not Recovered/Not Resolved]
  - Wheezing [Not Recovered/Not Resolved]
  - Condition aggravated [Unknown]
  - Lung disorder [Unknown]
  - Infection [Unknown]
  - Hypoacusis [Not Recovered/Not Resolved]
